FAERS Safety Report 6557190-4 (Version None)
Quarter: 2010Q1

REPORT INFORMATION
  Report Type: 
  Country: None (occurrence: None)
  Receive Date: 20100127
  Receipt Date: 20100127
  Transmission Date: 20100710
  Serious: Yes (Hospitalization)
  Sender: FDA-Public Use
  Company Number: None

PATIENT
  Age: 53 Year
  Sex: Male
  Weight: 61.5 kg

DRUGS (3)
  1. SULFAMETHOXAZOLE AND TRIMETHOPRIM [Suspect]
     Indication: HYPERTENSION
     Dosage: 800/160 MG BID PO
     Route: 048
     Dates: start: 20091204, end: 20091215
  2. SULFAMETHOXAZOLE AND TRIMETHOPRIM [Suspect]
     Indication: RENAL FAILURE CHRONIC
     Dosage: 800/160 MG BID PO
     Route: 048
     Dates: start: 20091204, end: 20091215
  3. SULFAMETHOXAZOLE AND TRIMETHOPRIM [Suspect]
     Indication: URINARY TRACT INFECTION
     Dosage: 800/160 MG BID PO
     Route: 048
     Dates: start: 20091204, end: 20091215

REACTIONS (2)
  - RENAL FAILURE ACUTE [None]
  - RHABDOMYOLYSIS [None]
